FAERS Safety Report 19093814 (Version 2)
Quarter: 2021Q2

REPORT INFORMATION
  Report Type: Spontaneous
  Country: GB (occurrence: GB)
  Receive Date: 20210405
  Receipt Date: 20210415
  Transmission Date: 20210717
  Serious: Yes (Other)
  Sender: FDA-Public Use
  Company Number: GB-PFIZER INC-2021334264

PATIENT
  Sex: Female

DRUGS (6)
  1. DASATINIB. [Suspect]
     Active Substance: DASATINIB
     Indication: CHRONIC MYELOID LEUKAEMIA
     Dosage: UNK
     Route: 065
  2. BOSUTINIB [Suspect]
     Active Substance: BOSUTINIB
     Indication: CHRONIC MYELOID LEUKAEMIA
     Dosage: UNK
     Route: 065
     Dates: start: 20190710, end: 20200310
  3. IMATINIB. [Suspect]
     Active Substance: IMATINIB MESYLATE
     Indication: CHRONIC MYELOID LEUKAEMIA
     Dosage: UNK
     Route: 065
  4. NILOTINIB [Suspect]
     Active Substance: NILOTINIB
     Indication: CHRONIC MYELOID LEUKAEMIA
     Dosage: 400 MG, QD
     Route: 065
  5. DASATINIB. [Suspect]
     Active Substance: DASATINIB
     Dosage: UNK
     Route: 065
  6. DASATINIB. [Suspect]
     Active Substance: DASATINIB
     Route: 065

REACTIONS (4)
  - Neoplasm progression [Unknown]
  - Drug intolerance [Unknown]
  - Diarrhoea [Unknown]
  - Pancytopenia [Unknown]
